FAERS Safety Report 12257075 (Version 1)
Quarter: 2016Q2

REPORT INFORMATION
  Report Type: Spontaneous
  Country: CA (occurrence: CA)
  Receive Date: 20160412
  Receipt Date: 20160412
  Transmission Date: 20160815
  Serious: Yes (Hospitalization)
  Sender: FDA-Public Use
  Company Number: CA-MYLANLABS-2016M1014687

PATIENT

DRUGS (4)
  1. PERINDOPRIL [Concomitant]
     Active Substance: PERINDOPRIL
     Dosage: 4MG DAILY
     Route: 065
  2. LIOTHYRONINE [Suspect]
     Active Substance: LIOTHYRONINE
     Indication: HYPOTHYROIDISM
     Dosage: 25 MICROG IN HYPROMELLOSE FOR ONCE DAILY DOSING (INTENDED DOSAGE)
     Route: 065
  3. METFORMIN [Concomitant]
     Active Substance: METFORMIN HYDROCHLORIDE
     Route: 065
  4. ASPIRIN                            /00002701/ [Concomitant]
     Active Substance: ASPIRIN
     Dosage: 81MG ONCE DAILY
     Route: 065

REACTIONS (7)
  - Product preparation error [Recovering/Resolving]
  - Vomiting [Recovered/Resolved]
  - Hyperthyroidism [Unknown]
  - Hypokalaemia [Recovered/Resolved]
  - Overdose [Recovering/Resolving]
  - Hypernatraemia [Recovered/Resolved]
  - Delirium [Unknown]
